FAERS Safety Report 21790790 (Version 1)
Quarter: 2022Q4

REPORT INFORMATION
  Report Type: Spontaneous
  Country: US (occurrence: None)
  Receive Date: 20221227
  Receipt Date: 20221227
  Transmission Date: 20230113
  Serious: No
  Sender: FDA-Public Use
  Company Number: None

PATIENT
  Age: 53 Year
  Sex: Female

DRUGS (1)
  1. CIMZIA [Suspect]
     Active Substance: CERTOLIZUMAB PEGOL
     Indication: Rheumatoid arthritis
     Dosage: OTHER FREQUENCY : OTHER;?
     Route: 058
     Dates: start: 20210909

REACTIONS (3)
  - Gastrointestinal motility disorder [None]
  - Impaired gastric emptying [None]
  - Intestinal pseudo-obstruction [None]

NARRATIVE: CASE EVENT DATE: 20221216
